FAERS Safety Report 5067724-7 (Version None)
Quarter: 2006Q3

REPORT INFORMATION
  Report Type: 
  Country: None (occurrence: None)
  Receive Date: 20060728
  Receipt Date: 20060710
  Transmission Date: 20061208
  Serious: Yes (Death)
  Sender: FDA-Public Use
  Company Number: HU200606003489

PATIENT
  Age: 67 Year
  Sex: Male
  Weight: 93 kg

DRUGS (6)
  1. DULOXETINE HYDROCHLORIDE (DULOXETINE HYDROCHLORIDE) CAPSULE [Suspect]
     Indication: DEPRESSION
     Dosage: 60 MG DAILY (1/D) ORAL
     Route: 048
     Dates: start: 20060523, end: 20060528
  2. MIANSERIN ^MERCK^ (MIANSERIN HYDROCHLORIDE) [Concomitant]
  3. SUPRASTIN (CHLOROPYRAMINE HYDROCHLORIDE) [Concomitant]
  4. ALFETIM (ALFUZOSIN HYDROCHLORIDE) [Concomitant]
  5. BISOPROLOL FUMARATE [Concomitant]
  6. MONOPRIL [Concomitant]

REACTIONS (1)
  - INJURY ASPHYXIATION [None]
